FAERS Safety Report 25508814 (Version 1)
Quarter: 2025Q3

REPORT INFORMATION
  Report Type: Report from Study
  Country: CN (occurrence: CN)
  Receive Date: 20250703
  Receipt Date: 20250703
  Transmission Date: 20251021
  Serious: Yes (Hospitalization)
  Sender: DAIICHI
  Company Number: CN-DSJP-DS-2025-150380-CN

PATIENT
  Sex: Female
  Weight: 48 kg

DRUGS (43)
  1. ENHERTU [Suspect]
     Active Substance: FAM-TRASTUZUMAB DERUXTECAN-NXKI
     Indication: Breast cancer
     Route: 065
     Dates: start: 20250612, end: 20250612
  2. METOPROLOL TARTRATE [Concomitant]
     Active Substance: METOPROLOL TARTRATE
     Indication: Hypertension
     Dosage: 1 DOSAGE FORM, QD
     Route: 048
  3. ADALAT [Concomitant]
     Active Substance: NIFEDIPINE
     Indication: Hypertension
     Dosage: 1 DOSAGE FORM, QD
     Route: 048
  4. GLICLAZIDE [Concomitant]
     Active Substance: GLICLAZIDE
     Indication: Diabetes mellitus
     Dosage: 1 DOSAGE FORM, QD
     Route: 048
  5. PREGABALIN [Concomitant]
     Active Substance: PREGABALIN
     Indication: Pain
     Dosage: 75 MG, BID
     Route: 048
     Dates: start: 20250611
  6. ETORICOXIB [Concomitant]
     Active Substance: ETORICOXIB
     Indication: Pain
     Dosage: 60 MG, QD
     Route: 048
     Dates: start: 20250611
  7. DEXTROSE [Concomitant]
     Active Substance: DEXTROSE MONOHYDRATE
     Indication: Hypoalbuminaemia
     Dosage: 400 ML, QD
     Route: 041
     Dates: start: 20250617, end: 20250618
  8. ELECTROLYTES NOS\MINERALS [Concomitant]
     Active Substance: ELECTROLYTES NOS\MINERALS
     Indication: Hypoalbuminaemia
     Dosage: 10 ML, QD
     Route: 041
     Dates: start: 20250617, end: 20250618
  9. COMPOSITE POTASSIUM HYDROGEN PHOSPHATE [Concomitant]
     Indication: Hypoalbuminaemia
     Dosage: 10 ML, QD
     Route: 041
     Dates: start: 20250617, end: 20250618
  10. SODIUM CHLORIDE [Concomitant]
     Active Substance: SODIUM CHLORIDE
     Indication: Hypoalbuminaemia
     Dosage: 40 ML, QD
     Route: 041
     Dates: start: 20250617, end: 20250618
  11. AMINO ACIDS, SOURCE UNSPECIFIED [Concomitant]
     Active Substance: AMINO ACIDS, SOURCE UNSPECIFIED
     Indication: Hypoalbuminaemia
     Dosage: 500 ML, QD
     Route: 041
     Dates: start: 20250617, end: 20250618
  12. MULTI OIL FAT EMULSION (C6-24) [Concomitant]
     Indication: Hypoalbuminaemia
     Dosage: 200 ML, QD
     Route: 041
     Dates: start: 20250617, end: 20250618
  13. VITAMINS [Concomitant]
     Active Substance: VITAMINS
     Indication: Hypoalbuminaemia
     Dosage: 1 BOTTLE, QD
     Route: 041
     Dates: start: 20250617, end: 20250618
  14. ERGOCALCIFEROL\PHYTONADIONE\RETINOL\TOCOPHEROL [Concomitant]
     Active Substance: ERGOCALCIFEROL\PHYTONADIONE\RETINOL\TOCOPHEROL
     Indication: Hypoalbuminaemia
     Dosage: 10 ML, QD
     Route: 041
     Dates: start: 20250617, end: 20250618
  15. POTASSIUM CHLORIDE [Concomitant]
     Active Substance: POTASSIUM CHLORIDE
     Indication: Hypoalbuminaemia
     Dosage: 30 ML, QD
     Route: 041
     Dates: start: 20250617, end: 20250618
  16. INSULIN NOS [Concomitant]
     Active Substance: INSULIN NOS
     Indication: Hypoalbuminaemia
     Dosage: 40 IU, QD
     Route: 041
     Dates: start: 20250617, end: 20250618
  17. APREPITANT [Concomitant]
     Active Substance: APREPITANT
     Indication: Nausea
     Dosage: 1 DOSAGE FORM, QD
     Route: 048
     Dates: start: 20250612, end: 20250612
  18. APREPITANT [Concomitant]
     Active Substance: APREPITANT
     Indication: Vomiting
     Dosage: 1 DOSAGE FORM, QD
     Route: 048
     Dates: start: 20250613, end: 20250614
  19. APREPITANT [Concomitant]
     Active Substance: APREPITANT
     Indication: Prophylaxis of nausea and vomiting
  20. AZASETRON HYDROCHLORIDE [Concomitant]
     Active Substance: AZASETRON HYDROCHLORIDE
     Indication: Nausea
     Dosage: 10 MG, QD
     Route: 041
     Dates: start: 20250613, end: 20250613
  21. AZASETRON HYDROCHLORIDE [Concomitant]
     Active Substance: AZASETRON HYDROCHLORIDE
     Indication: Vomiting
     Dosage: 10 MG, QD
     Route: 041
     Dates: start: 20250614, end: 20250618
  22. AZASETRON HYDROCHLORIDE [Concomitant]
     Active Substance: AZASETRON HYDROCHLORIDE
     Indication: Prophylaxis of nausea and vomiting
     Dosage: 10 MG, SINGLE (ONCE)
     Route: 041
     Dates: start: 20250612, end: 20250612
  23. PROMETHAZINE HYDROCHLORIDE [Concomitant]
     Active Substance: PROMETHAZINE HYDROCHLORIDE
     Indication: Nausea
     Dosage: 25 MG, SINGLE (ONCE)
     Route: 030
     Dates: start: 20250614, end: 20250614
  24. PROMETHAZINE HYDROCHLORIDE [Concomitant]
     Active Substance: PROMETHAZINE HYDROCHLORIDE
     Indication: Vomiting
  25. APREPITANT [Concomitant]
     Active Substance: APREPITANT
     Indication: Nausea
     Dosage: 130 MG, SINGLE (ONCE)
     Route: 041
     Dates: start: 20250614, end: 20250614
  26. APREPITANT [Concomitant]
     Active Substance: APREPITANT
     Indication: Vomiting
  27. HU GAN [Concomitant]
     Indication: Aspartate aminotransferase increased
     Dosage: 2 G, TID
     Route: 048
     Dates: start: 20250618
  28. PHOSPHOLIPID [Concomitant]
     Active Substance: PHOSPHOLIPID
     Indication: Aspartate aminotransferase increased
     Dosage: 2 G, TID
     Route: 048
     Dates: start: 20250618
  29. AMINO ACIDS, SOURCE UNSPECIFIED [Concomitant]
     Active Substance: AMINO ACIDS, SOURCE UNSPECIFIED
     Indication: Nutritional supplementation
     Dosage: 21.2 G, QD
     Route: 041
     Dates: start: 20250613, end: 20250615
  30. GLUTATHIONE [Concomitant]
     Active Substance: GLUTATHIONE
     Indication: Aspartate aminotransferase increased
     Dosage: 1.8 G, QD
     Route: 041
     Dates: start: 20250611, end: 20250618
  31. SHEN MAI [ADENOPHORA SPP. ROOT;DIOSCOREA OPPOSITIFOLIA RHIZOME;LYCIUM [Concomitant]
     Indication: Product used for unknown indication
     Dosage: 100 ML, QD
     Route: 041
     Dates: start: 20250611, end: 20250618
  32. VITAMINS [Concomitant]
     Active Substance: VITAMINS
     Indication: Nutritional supplementation
     Dosage: 5 ML, QD
     Route: 041
     Dates: start: 20250611, end: 20250618
  33. IBANDRONATE SODIUM [Concomitant]
     Active Substance: IBANDRONATE SODIUM
     Indication: Bone disorder
     Dosage: 6 MG, QD
     Route: 041
     Dates: start: 20250611, end: 20250618
  34. PANTOPRAZOLE SODIUM [Concomitant]
     Active Substance: PANTOPRAZOLE SODIUM
     Indication: Gastrointestinal disorder prophylaxis
     Dosage: 40 MG, QD
     Route: 041
     Dates: start: 20250612, end: 20250613
  35. FUROSEMIDE [Concomitant]
     Active Substance: FUROSEMIDE
     Indication: Diuretic therapy
     Dosage: 20 MG, SINGLE (ONCE)
     Route: 042
     Dates: start: 20250612, end: 20250612
  36. PROMETHAZINE HYDROCHLORIDE [Concomitant]
     Active Substance: PROMETHAZINE HYDROCHLORIDE
     Indication: Prophylaxis of nausea and vomiting
     Dosage: 25 MG, SINGLE (ONCE)
     Route: 030
     Dates: start: 20250612, end: 20250612
  37. DEXAMETHASONE SODIUM PHOSPHATE [Concomitant]
     Active Substance: DEXAMETHASONE SODIUM PHOSPHATE
     Indication: Prophylaxis of nausea and vomiting
     Dosage: 5 MG, SINGLE
     Route: 041
     Dates: start: 20250612, end: 20250612
  38. CIMETIDINE [Concomitant]
     Active Substance: CIMETIDINE
     Indication: Gastrointestinal disorder prophylaxis
     Dosage: 0.3 G, SINGLE (ONCE)
     Route: 041
     Dates: start: 20250612, end: 20250612
  39. GLYCERIN [Concomitant]
     Active Substance: GLYCERIN
     Indication: Faecal disimpaction
     Dosage: 40 ML, SINGLE (ONCE) (ROUTE: OTHER, INSERT INTO THE ANUS)
     Dates: start: 20250614, end: 20250614
  40. MANNITOL [Concomitant]
     Active Substance: MANNITOL
     Indication: Intracranial pressure increased
     Dosage: 20 G, SINGLE (ONCE)
     Route: 041
     Dates: start: 20250614, end: 20250614
  41. CALCIUM CHLORIDE\POTASSIUM CHLORIDE\SODIUM CHLORIDE\SODIUM LACTATE [Concomitant]
     Active Substance: CALCIUM CHLORIDE\POTASSIUM CHLORIDE\SODIUM CHLORIDE\SODIUM LACTATE
     Indication: Nutritional supplementation
     Dosage: 500 ML, SINGLE
     Route: 041
     Dates: start: 20250614, end: 20250614
  42. RACEANISODAMINE HYDROCHLORIDE [Concomitant]
     Indication: Abdominal pain
     Dosage: 10 MG, SINGLE
     Route: 030
     Dates: start: 20250617, end: 20250617
  43. YI QI BU XUE [Concomitant]
     Indication: Blood disorder
     Dosage: 10 DOSAGE FORM, SINGLE (ONCE)
     Route: 048
     Dates: start: 20250618, end: 20250618

REACTIONS (1)
  - Hypertension [Recovered/Resolved]

NARRATIVE: CASE EVENT DATE: 20250624
